FAERS Safety Report 6859293-3 (Version None)
Quarter: 2010Q3

REPORT INFORMATION
  Report Type: 
  Country: None (occurrence: None)
  Receive Date: 20100719
  Receipt Date: 20080430
  Transmission Date: 20110219
  Serious: Yes (Other)
  Sender: FDA-Public Use
  Company Number: US-PFIZER INC-2008016857

PATIENT
  Sex: Male

DRUGS (5)
  1. CHANTIX [Suspect]
     Indication: TOBACCO USER
     Route: 048
  2. ADVICOR [Concomitant]
  3. SYNTHROID [Concomitant]
  4. MICARDIS [Concomitant]
  5. LOTREL [Concomitant]

REACTIONS (1)
  - SUICIDAL IDEATION [None]
